FAERS Safety Report 6473481-X (Version None)
Quarter: 2009Q4

REPORT INFORMATION
  Report Type: 
  Country: None (occurrence: None)
  Receive Date: 20091204
  Receipt Date: 20081117
  Transmission Date: 20100525
  Serious: Yes (Other)
  Sender: FDA-Public Use
  Company Number: US-ELI_LILLY_AND_COMPANY-US200811003978

PATIENT
  Sex: Male

DRUGS (2)
  1. HUMALOG [Suspect]
  2. LANTUS [Concomitant]

REACTIONS (1)
  - BRAIN INJURY [None]
